FAERS Safety Report 21417526 (Version 1)
Quarter: 2022Q4

REPORT INFORMATION
  Report Type: Spontaneous
  Country: US (occurrence: US)
  Receive Date: 20221006
  Receipt Date: 20221006
  Transmission Date: 20230113
  Serious: No
  Sender: FDA-Public Use
  Company Number: US-SUN PHARMACEUTICAL INDUSTRIES LTD-2022R1-340460

PATIENT
  Sex: Female

DRUGS (1)
  1. CEQUA [Suspect]
     Active Substance: CYCLOSPORINE
     Indication: Ocular rosacea
     Route: 047

REACTIONS (8)
  - Ocular rosacea [Unknown]
  - Eye irritation [Recovering/Resolving]
  - Butterfly rash [Unknown]
  - Skin irritation [Unknown]
  - Off label use [Unknown]
  - Conjunctivitis [Unknown]
  - Conjunctival hyperaemia [Unknown]
  - Condition aggravated [Unknown]
